FAERS Safety Report 4526807-8 (Version None)
Quarter: 2004Q4

REPORT INFORMATION
  Report Type: 
  Country: None (occurrence: None)
  Receive Date: 20041213
  Receipt Date: 20041129
  Transmission Date: 20050328
  Serious: Yes (Hospitalization)
  Sender: FDA-Public Use
  Company Number: 210753

PATIENT
  Age: 77 Year
  Sex: Male

DRUGS (1)
  1. RITUXAN [Suspect]
     Indication: WALDENSTROM'S MACROGLOBULINAEMIA
     Dates: start: 20020109

REACTIONS (3)
  - INFUSION RELATED REACTION [None]
  - JAUNDICE [None]
  - PRURITUS [None]
